FAERS Safety Report 7414158-3 (Version None)
Quarter: 2011Q2

REPORT INFORMATION
  Report Type: 
  Country: None (occurrence: None)
  Receive Date: 20110414
  Receipt Date: 20110414
  Transmission Date: 20111010
  Serious: Yes (Other)
  Sender: FDA-Public Use
  Company Number: AU-PFIZER INC-2011080623

PATIENT
  Age: 47 Year
  Sex: Male

DRUGS (1)
  1. CHAMPIX [Suspect]
     Dosage: UNK
     Route: 048
     Dates: start: 20100525, end: 20100827

REACTIONS (5)
  - BIPOLAR DISORDER [None]
  - INSOMNIA [None]
  - NIGHTMARE [None]
  - ANGER [None]
  - AGITATION [None]
